FAERS Safety Report 4882964-5 (Version None)
Quarter: 2006Q1

REPORT INFORMATION
  Report Type: 
  Country: None (occurrence: None)
  Receive Date: 20060118
  Receipt Date: 20060106
  Transmission Date: 20060701
  Serious: Yes (Death)
  Sender: FDA-Public Use
  Company Number: GB-BRISTOL-MYERS SQUIBB COMPANY-13238076

PATIENT
  Age: 1 Day

DRUGS (5)
  1. IRBESARTAN [Suspect]
     Route: 064
  2. PREDNISOLONE [Concomitant]
     Route: 064
  3. TACROLIMUS [Concomitant]
     Route: 064
  4. AZATHIOPRINE [Concomitant]
     Route: 064
  5. NIFEDIPINE [Concomitant]
     Route: 064

REACTIONS (2)
  - PREGNANCY [None]
  - VENTRICULAR HYPOPLASIA [None]
